FAERS Safety Report 8092249-4 (Version None)
Quarter: 2012Q1

REPORT INFORMATION
  Report Type: 
  Country: None (occurrence: None)
  Receive Date: 20120129
  Receipt Date: 20111103
  Transmission Date: 20120608
  Serious: No
  Sender: FDA-Public Use
  Company Number: US-ABBOTT-11P-163-0871677-00

PATIENT
  Sex: Female
  Weight: 55.388 kg

DRUGS (3)
  1. PLAQUENIL [Concomitant]
     Indication: PRODUCT USED FOR UNKNOWN INDICATION
  2. WELLBUTRIN [Concomitant]
     Indication: PRODUCT USED FOR UNKNOWN INDICATION
  3. HUMIRA [Suspect]
     Indication: RHEUMATOID ARTHRITIS
     Route: 058
     Dates: start: 20090101, end: 20110101

REACTIONS (5)
  - MOUTH ULCERATION [None]
  - WEIGHT DECREASED [None]
  - SUNBURN [None]
  - WHITE BLOOD CELL COUNT ABNORMAL [None]
  - PAIN [None]
